FAERS Safety Report 4777591-4 (Version None)
Quarter: 2005Q3

REPORT INFORMATION
  Report Type: 
  Country: None (occurrence: None)
  Receive Date: 20050921
  Receipt Date: 20050907
  Transmission Date: 20060218
  Serious: Yes (Hospitalization)
  Sender: FDA-Public Use
  Company Number: 2005US001066

PATIENT
  Age: 58 Year
  Sex: Male
  Weight: 70 kg

DRUGS (1)
  1. ADENOSCAN [Suspect]
     Indication: SCAN MYOCARDIAL PERFUSION
     Dosage: IV NOS
     Route: 042
     Dates: start: 20050805, end: 20050805

REACTIONS (9)
  - BACTERIAL CULTURE POSITIVE [None]
  - BLOOD PRESSURE DECREASED [None]
  - ESCHERICHIA INFECTION [None]
  - GROIN PAIN [None]
  - HYPERHIDROSIS [None]
  - OXYGEN SATURATION DECREASED [None]
  - PAIN IN EXTREMITY [None]
  - POOR QUALITY DRUG ADMINISTERED [None]
  - TREMOR [None]
